FAERS Safety Report 5224407-8 (Version None)
Quarter: 2007Q1

REPORT INFORMATION
  Report Type: 
  Country: None (occurrence: None)
  Receive Date: 20070130
  Receipt Date: 20070118
  Transmission Date: 20070707
  Serious: Yes (Hospitalization)
  Sender: FDA-Public Use
  Company Number: GB-PFIZER INC-2006127368

PATIENT
  Age: 57 Year
  Sex: Male
  Weight: 90 kg

DRUGS (5)
  1. LIPITOR [Suspect]
     Indication: HYPERCHOLESTEROLAEMIA
     Route: 048
     Dates: start: 20020501, end: 20050101
  2. GRAPEFRUIT JUICE [Interacting]
     Route: 048
  3. ACETAMINOPHEN AND CODEINE PHOSPHATE [Suspect]
  4. OMEPRAZOLE [Concomitant]
  5. DICLOFENAC SODIUM [Concomitant]

REACTIONS (7)
  - BLOOD CREATINE PHOSPHOKINASE INCREASED [None]
  - DRUG INTERACTION [None]
  - INFECTION [None]
  - KNEE ARTHROPLASTY [None]
  - MALAISE [None]
  - MYALGIA [None]
  - RHABDOMYOLYSIS [None]
